FAERS Safety Report 10547586 (Version 1)
Quarter: 2014Q4

REPORT INFORMATION
  Report Type: Spontaneous
  Country: KR (occurrence: KR)
  Receive Date: 20141028
  Receipt Date: 20141028
  Transmission Date: 20150529
  Serious: Yes (Hospitalization)
  Sender: FDA-Public Use
  Company Number: KR-ROCHE-1479516

PATIENT
  Age: 77 Year
  Sex: Female

DRUGS (1)
  1. BONVIVA [Suspect]
     Active Substance: IBANDRONATE SODIUM
     Indication: OSTEOPOROSIS
     Dosage: ON 26/JUL/2013: SECOND DOSE, ON 26/OCT/2013: THIRD DOSE, ON 24/JAN/2014: FOURTH DOSE, ON 24/APR/2014
     Route: 065
     Dates: start: 20130426, end: 20140724

REACTIONS (2)
  - Surgery [Unknown]
  - Fall [Unknown]

NARRATIVE: CASE EVENT DATE: 20140922
